FAERS Safety Report 7815623-7 (Version None)
Quarter: 2011Q4

REPORT INFORMATION
  Report Type: 
  Country: None (occurrence: None)
  Receive Date: 20111014
  Receipt Date: 20111007
  Transmission Date: 20120403
  Serious: Yes (Hospitalization)
  Sender: FDA-Public Use
  Company Number: JP-ABBOTT-11P-087-0859421-00

PATIENT
  Age: 74 Year
  Sex: Female

DRUGS (9)
  1. METHYLDIGOXIN [Interacting]
     Indication: ATRIAL FIBRILLATION
  2. METHYLDIGOXIN [Interacting]
     Indication: DYSLIPIDAEMIA
  3. DISOPYRAMIDE [Interacting]
     Indication: ATRIAL FIBRILLATION
  4. CLARITHROMYCIN [Suspect]
     Indication: NASOPHARYNGITIS
  5. METOPROLOL TARTRATE [Interacting]
     Indication: ATRIAL FIBRILLATION
  6. METOPROLOL TARTRATE [Interacting]
     Indication: DYSLIPIDAEMIA
  7. PROBUCOL [Interacting]
     Indication: ATRIAL FIBRILLATION
  8. PROBUCOL [Interacting]
     Indication: DYSLIPIDAEMIA
  9. DISOPYRAMIDE [Interacting]
     Indication: DYSLIPIDAEMIA

REACTIONS (3)
  - DRUG INTERACTION [None]
  - LONG QT SYNDROME [None]
  - TORSADE DE POINTES [None]
